FAERS Safety Report 6062810-7 (Version None)
Quarter: 2009Q1

REPORT INFORMATION
  Report Type: 
  Country: None (occurrence: None)
  Receive Date: 20090203
  Receipt Date: 20090130
  Transmission Date: 20090719
  Serious: Yes (Other)
  Sender: FDA-Public Use
  Company Number: US-GENENTECH-269530

PATIENT
  Sex: Female
  Weight: 82.086 kg

DRUGS (2)
  1. RAPTIVA [Suspect]
     Indication: PSORIASIS
     Dosage: 0.4 ML, SINGLE
     Route: 058
     Dates: start: 20061230, end: 20061230
  2. RAPTIVA [Suspect]
     Dosage: 0.6 ML, 1/WEEK
     Route: 058
     Dates: end: 20071212

REACTIONS (4)
  - ARTHRALGIA [None]
  - GLOMERULONEPHRITIS MEMBRANOUS [None]
  - NEPHROTIC SYNDROME [None]
  - PSORIASIS [None]
